FAERS Safety Report 9317504 (Version 1)
Quarter: 2013Q2

REPORT INFORMATION
  Report Type: Spontaneous
  Country: US (occurrence: US)
  Receive Date: 20130530
  Receipt Date: 20130530
  Transmission Date: 20140414
  Serious: No
  Sender: FDA-Public Use
  Company Number: US-NOVEN-12US005246

PATIENT
  Age: 8 Year
  Sex: Female

DRUGS (2)
  1. DAYTRANA [Suspect]
     Indication: ATTENTION DEFICIT/HYPERACTIVITY DISORDER
     Dosage: 20 MG, QD
     Route: 062
     Dates: start: 20120828
  2. DAYTRANA [Suspect]
     Dosage: UNK
     Route: 062

REACTIONS (3)
  - Application site erythema [Not Recovered/Not Resolved]
  - Application site warmth [Recovered/Resolved]
  - Application site pruritus [Not Recovered/Not Resolved]
